FAERS Safety Report 10021902 (Version 1)
Quarter: 2014Q1

REPORT INFORMATION
  Report Type: Spontaneous
  Country: US (occurrence: None)
  Receive Date: 20140313
  Receipt Date: 20140313
  Transmission Date: 20141002
  Serious: Yes (Other)
  Sender: FDA-Public Use
  Company Number: 223061

PATIENT
  Age: 57 Year
  Sex: Male
  Weight: 92.17 kg

DRUGS (1)
  1. CEFEPIME FOR INJECTION, USP (CEFEPIME HYDROCHLORIDE) [Suspect]
     Indication: PERITONITIS
     Dosage: 1.875 G, QHS, UNKNOWN, INTRAPERITONEAL
     Route: 033
     Dates: start: 20131224, end: 20140113

REACTIONS (1)
  - Fungal infection [None]
